FAERS Safety Report 20789400 (Version 1)
Quarter: 2022Q2

REPORT INFORMATION
  Report Type: Spontaneous
  Country: US (occurrence: None)
  Receive Date: 20220504
  Receipt Date: 20220504
  Transmission Date: 20220721
  Serious: No
  Sender: FDA-Public Use
  Company Number: None

PATIENT
  Age: 66 Year
  Sex: Female
  Weight: 108 kg

DRUGS (9)
  1. FLUOROURACIL [Suspect]
     Active Substance: FLUOROURACIL
     Indication: Skin cancer
     Dosage: OTHER STRENGTH : DAB;?OTHER QUANTITY : 1 DAB;?FREQUENCY : AT BEDTIME;?
     Route: 061
     Dates: start: 20220302, end: 20220325
  2. TRIAMTERENE [Concomitant]
     Active Substance: TRIAMTERENE
  3. VITAMIN D NOS [Concomitant]
     Active Substance: VITAMIN D NOS
  4. LISINOPRIL [Concomitant]
  5. METOPROLOL [Concomitant]
     Active Substance: METOPROLOL
  6. ATORVASTATIN [Concomitant]
     Active Substance: ATORVASTATIN
  7. ADVIL [Concomitant]
     Active Substance: IBUPROFEN
  8. CALCIUM [Concomitant]
     Active Substance: CALCIUM
  9. VITAMIN D NOS [Concomitant]
     Active Substance: VITAMIN D NOS

REACTIONS (2)
  - Stomatitis [None]
  - Glossodynia [None]

NARRATIVE: CASE EVENT DATE: 20220331
